FAERS Safety Report 4345784-6 (Version None)
Quarter: 2004Q2

REPORT INFORMATION
  Report Type: 
  Country: None (occurrence: None)
  Receive Date: 20040421
  Receipt Date: 19970811
  Transmission Date: 20050107
  Serious: Yes (Life-Threatening, Hospitalization)
  Sender: FDA-Public Use
  Company Number: EZFI00213

PATIENT
  Age: 47 Year
  Sex: Female

DRUGS (1)
  1. POVIDONE IODINE [Suspect]
     Dosage: 700 MG, IRRIG BODY CAVE
     Dates: start: 19970810, end: 19970810

REACTIONS (6)
  - BLOOD PRESSURE DECREASED [None]
  - COAGULOPATHY [None]
  - DISSEMINATED INTRAVASCULAR COAGULATION [None]
  - LABORATORY TEST ABNORMAL [None]
  - OBSTRUCTIVE AIRWAYS DISORDER [None]
  - RED BLOOD CELL ABNORMALITY [None]
